FAERS Safety Report 7937111-X (Version None)
Quarter: 2011Q4

REPORT INFORMATION
  Report Type: 
  Country: None (occurrence: None)
  Receive Date: 20111123
  Receipt Date: 20111114
  Transmission Date: 20120403
  Serious: Yes (Other)
  Sender: FDA-Public Use
  Company Number: CA-JNJFOC-20111107496

PATIENT
  Sex: Female
  Weight: 58.5 kg

DRUGS (6)
  1. ACTONEL [Concomitant]
     Route: 065
  2. REMICADE [Suspect]
     Indication: CROHN'S DISEASE
     Route: 042
     Dates: start: 20080307
  3. VITAMIN B-12 [Concomitant]
     Route: 065
  4. ESCITALOPRAM [Concomitant]
     Route: 065
  5. FOLIC ACID [Concomitant]
     Route: 065
  6. CALCIUM 500D [Concomitant]
     Dosage: 500/400
     Route: 065

REACTIONS (2)
  - STOMATITIS [None]
  - OROPHARYNGITIS FUNGAL [None]
